FAERS Safety Report 8946980 (Version 2)
Quarter: 2014Q2

REPORT INFORMATION
  Report Type: Spontaneous
  Country: US (occurrence: US)
  Receive Date: 20121205
  Receipt Date: 20131024
  Transmission Date: 20141212
  Serious: Yes (Other)
  Sender: FDA-Public Use
  Company Number: US-PFIZER INC-2012303981

PATIENT
  Sex: Male

DRUGS (1)
  1. ADVIL PM [Suspect]
     Dosage: 400/76 MG, 1X/DAY

REACTIONS (1)
  - Gastric haemorrhage [Unknown]
